FAERS Safety Report 17679208 (Version 1)
Quarter: 2020Q2

REPORT INFORMATION
  Report Type: Report from Study
  Country: US (occurrence: US)
  Receive Date: 20200417
  Receipt Date: 20200417
  Transmission Date: 20200714
  Serious: Yes (Other)
  Sender: FDA-Public Use
  Company Number: US-SUN PHARMACEUTICAL INDUSTRIES LTD-2020R1-244048

PATIENT
  Age: 16 Year
  Sex: Male

DRUGS (8)
  1. ZONISAMIDE. [Suspect]
     Active Substance: ZONISAMIDE
     Indication: ATONIC SEIZURES
     Dosage: UNK
     Route: 065
  2. CANNABIDIOL. [Suspect]
     Active Substance: CANNABIDIOL
     Indication: TONIC CONVULSION
  3. ZONISAMIDE. [Suspect]
     Active Substance: ZONISAMIDE
     Indication: TONIC CONVULSION
  4. VIGABATRIN. [Suspect]
     Active Substance: VIGABATRIN
     Indication: ATONIC SEIZURES
     Dosage: UNK
     Route: 065
  5. VIGABATRIN. [Suspect]
     Active Substance: VIGABATRIN
     Indication: TONIC CONVULSION
  6. CANNABIDIOL. [Suspect]
     Active Substance: CANNABIDIOL
     Indication: ATONIC SEIZURES
     Dosage: UNK
     Route: 065
  7. CLOBAZAM. [Suspect]
     Active Substance: CLOBAZAM
     Indication: TONIC CONVULSION
  8. CLOBAZAM. [Suspect]
     Active Substance: CLOBAZAM
     Indication: ATONIC SEIZURES
     Dosage: UNK
     Route: 065

REACTIONS (2)
  - Infantile spasms [Unknown]
  - Somnolence [Unknown]
